FAERS Safety Report 9257592 (Version 3)
Quarter: 2014Q1

REPORT INFORMATION
  Report Type: Spontaneous
  Country: US (occurrence: US)
  Receive Date: 20130426
  Receipt Date: 20140124
  Transmission Date: 20141002
  Serious: Yes (Hospitalization, Disabling)
  Sender: FDA-Public Use
  Company Number: US-ASTRAZENECA-2013SE27703

PATIENT
  Age: 63 Year
  Sex: Female
  Weight: 60.3 kg

DRUGS (20)
  1. NEXIUM [Suspect]
     Indication: GASTROOESOPHAGEAL REFLUX DISEASE
     Route: 048
  2. NEXIUM [Suspect]
     Indication: GASTROOESOPHAGEAL REFLUX DISEASE
     Route: 048
     Dates: start: 2004
  3. NEXIUM [Suspect]
     Indication: GASTROOESOPHAGEAL REFLUX DISEASE
     Dosage: 110
     Route: 048
     Dates: start: 20071025
  4. FIORICET [Concomitant]
     Indication: MIGRAINE
     Route: 048
     Dates: start: 20070115
  5. PHENERGAN [Concomitant]
     Indication: NAUSEA
     Route: 054
     Dates: start: 20000104
  6. DELTASONE [Concomitant]
     Route: 048
     Dates: start: 20060112
  7. AMBIEN [Concomitant]
     Indication: SLEEP DISORDER
     Route: 048
     Dates: start: 20020128
  8. FERROUS SULFATE [Concomitant]
     Route: 048
     Dates: start: 19960916
  9. CLARITIN [Concomitant]
     Route: 048
     Dates: start: 20120305
  10. INDOCIN [Concomitant]
     Route: 048
     Dates: start: 19960919
  11. FLEXERIL [Concomitant]
     Indication: MUSCLE SPASMS
     Route: 048
     Dates: start: 19960919
  12. VALIUM [Concomitant]
     Route: 048
     Dates: start: 19980120
  13. ZANTAC [Concomitant]
     Route: 048
     Dates: start: 19991214
  14. PRILOSEC [Concomitant]
     Route: 048
     Dates: start: 20000131
  15. MORPHINE [Concomitant]
     Route: 048
     Dates: start: 20110821
  16. LORTAB [Concomitant]
     Dosage: 7.5/500 MG THREE TIMES A DAY
     Route: 048
     Dates: start: 20011129
  17. ULTRAM [Concomitant]
     Route: 048
     Dates: start: 20020411
  18. ACIPHEX [Concomitant]
     Route: 048
     Dates: start: 20020524
  19. PREVACID [Concomitant]
     Route: 048
     Dates: start: 20031114
  20. ALLEGRA [Concomitant]
     Route: 048
     Dates: start: 20100425

REACTIONS (9)
  - Sinus congestion [Unknown]
  - Back disorder [Unknown]
  - Osteoporosis [Unknown]
  - Bone disorder [Unknown]
  - Ankle fracture [Unknown]
  - Kyphosis [Unknown]
  - Wrist fracture [Unknown]
  - Osteopenia [Unknown]
  - Rib fracture [Unknown]
